FAERS Safety Report 17803317 (Version 1)
Quarter: 2020Q2

REPORT INFORMATION
  Report Type: Spontaneous
  Country: ES (occurrence: ES)
  Receive Date: 20200519
  Receipt Date: 20200519
  Transmission Date: 20200714
  Serious: Yes (Hospitalization)
  Sender: FDA-Public Use
  Company Number: ES-TEVA-2020-ES-1235961

PATIENT
  Age: 56 Year
  Sex: Male

DRUGS (2)
  1. HIDROCORTISONA (54A) [Suspect]
     Active Substance: HYDROCORTISONE
     Dosage: 200 MILLIGRAM DAILY;
     Route: 042
     Dates: start: 20200413, end: 20200417
  2. HIDROXICLOROQUINA (2143A) [Suspect]
     Active Substance: HYDROXYCHLOROQUINE
     Indication: COVID-19 PNEUMONIA
     Dosage: 400 MILLIGRAM DAILY;
     Route: 048
     Dates: start: 20200411, end: 20200413

REACTIONS (1)
  - Atrioventricular block first degree [Not Recovered/Not Resolved]

NARRATIVE: CASE EVENT DATE: 20200417
